FAERS Safety Report 11208302 (Version 1)
Quarter: 2015Q2

REPORT INFORMATION
  Report Type: Report from Study
  Country: US (occurrence: US)
  Receive Date: 20150622
  Receipt Date: 20150622
  Transmission Date: 20150821
  Serious: No
  Sender: FDA-Public Use
  Company Number: US-ABBVIE-15P-163-1406509-00

PATIENT
  Sex: Male
  Weight: 85.81 kg

DRUGS (1)
  1. VIEKIRA PAK [Suspect]
     Active Substance: DASABUVIR\OMBITASVIR\PARITAPREVIR\RITONAVIR
     Indication: CHRONIC HEPATITIS
     Dosage: TAKE AS DIRECTED IN THE AM AND PM
     Route: 048
     Dates: start: 201503

REACTIONS (2)
  - Inner ear disorder [Unknown]
  - Dizziness [Unknown]
